FAERS Safety Report 18948129 (Version 2)
Quarter: 2021Q2

REPORT INFORMATION
  Report Type: Spontaneous
  Country: US (occurrence: US)
  Receive Date: 20210226
  Receipt Date: 20210611
  Transmission Date: 20210717
  Serious: No
  Sender: FDA-Public Use
  Company Number: US-PFIZER INC-2021199250

PATIENT
  Age: 61 Year
  Sex: Female
  Weight: 83.45 kg

DRUGS (13)
  1. IBRANCE [Suspect]
     Active Substance: PALBOCICLIB
     Indication: BREAST CANCER FEMALE
     Dosage: 100 MG, CYCLIC (3 WEEKS ON, 1 WEEK OFF)
     Route: 048
     Dates: start: 20201022
  2. TYLENOL [Concomitant]
     Active Substance: ACETAMINOPHEN
     Dosage: UNK
  3. SINGULAIR [Concomitant]
     Active Substance: MONTELUKAST SODIUM
     Dosage: UNK
  4. VENTAVIS [Concomitant]
     Active Substance: ILOPROST
     Dosage: UNK
  5. IBRANCE [Suspect]
     Active Substance: PALBOCICLIB
     Indication: ILLNESS
     Dosage: 125 MG, UNK
  6. ANASTROZOLE. [Concomitant]
     Active Substance: ANASTROZOLE
     Dosage: UNK
  7. NAC [ACETYLCYSTEINE] [Concomitant]
     Active Substance: ACETYLCYSTEINE
     Dosage: UNK
  8. QUERCETIN DIHYDRATE [Concomitant]
     Dosage: UNK
  9. IBRANCE [Suspect]
     Active Substance: PALBOCICLIB
     Dosage: 75 MG, CYCLIC (DAILY FOR 3 WEEKS)
     Route: 048
     Dates: start: 20201022
  10. TRELEGY ELLIPTA [Concomitant]
     Active Substance: FLUTICASONE FUROATE\UMECLIDINIUM BROMIDE\VILANTEROL TRIFENATATE
     Dosage: UNK
  11. VISINE [TETRYZOLINE HYDROCHLORIDE] [Concomitant]
     Dosage: UNK
  12. CALCIUM CARBONATE. [Concomitant]
     Active Substance: CALCIUM CARBONATE
     Dosage: UNK
  13. ANORO ELLIPTA [Concomitant]
     Active Substance: UMECLIDINIUM BROMIDE\VILANTEROL TRIFENATATE
     Dosage: UNK

REACTIONS (2)
  - Red blood cell count decreased [Unknown]
  - White blood cell count decreased [Unknown]
